FAERS Safety Report 24047071 (Version 1)
Quarter: 2024Q3

REPORT INFORMATION
  Report Type: Spontaneous
  Country: US (occurrence: US)
  Receive Date: 20240703
  Receipt Date: 20240703
  Transmission Date: 20241017
  Serious: Yes (Other)
  Sender: HIKMA
  Company Number: US-Hikma Pharmaceuticals USA Inc.-US-H14001-23-01758

PATIENT
  Age: 64 Year
  Sex: Male

DRUGS (2)
  1. EVEROLIMUS [Suspect]
     Active Substance: EVEROLIMUS
     Indication: Renal cancer
     Dosage: 5 MILLIGRAM, QD
     Route: 048
     Dates: start: 202305
  2. LENVIMA [Concomitant]
     Active Substance: LENVATINIB
     Indication: Renal cancer
     Dosage: 18 MILLIGRAM
     Route: 065

REACTIONS (2)
  - Suspected product tampering [Unknown]
  - Product use issue [Unknown]
